FAERS Safety Report 16569428 (Version 1)
Quarter: 2019Q3

REPORT INFORMATION
  Report Type: Spontaneous
  Country: US (occurrence: US)
  Receive Date: 20190715
  Receipt Date: 20190715
  Transmission Date: 20191004
  Serious: Yes (Other)
  Sender: FDA-Public Use
  Company Number: US-CIPLA LTD.-2019US04953

PATIENT

DRUGS (1)
  1. DICLOFENAC [Suspect]
     Active Substance: DICLOFENAC
     Indication: PRODUCT USED FOR UNKNOWN INDICATION
     Dosage: UNK, FROM MANY YEARS
     Route: 061

REACTIONS (3)
  - Cardiac valve disease [Unknown]
  - Cardiac disorder [Unknown]
  - Hypertension [Unknown]

NARRATIVE: CASE EVENT DATE: 2018
